FAERS Safety Report 24265387 (Version 1)
Quarter: 2024Q3

REPORT INFORMATION
  Report Type: Spontaneous
  Country: DE (occurrence: DE)
  Receive Date: 20240829
  Receipt Date: 20240829
  Transmission Date: 20241017
  Serious: Yes (Hospitalization, Other)
  Sender: BRISTOL MYERS SQUIBB
  Company Number: DE-BRISTOL-MYERS SQUIBB COMPANY-2024-133975

PATIENT
  Age: 64 Year
  Sex: Female

DRUGS (2)
  1. OPDIVO [Suspect]
     Active Substance: NIVOLUMAB
     Indication: Malignant melanoma
     Dosage: DISCONTINUED AFTER 3 CYCLES DUE TO PERICARDIAL EFFUSION /ASYMPTOMATIC PERICARDITIS
     Dates: start: 201811, end: 201812
  2. OPDIVO [Suspect]
     Active Substance: NIVOLUMAB
     Dates: start: 202302, end: 202402

REACTIONS (8)
  - Pericardial effusion [Unknown]
  - Immune-mediated pericarditis [Unknown]
  - Left ventricular hypertrophy [Unknown]
  - Diastolic dysfunction [Unknown]
  - Mitral valve incompetence [Unknown]
  - Tricuspid valve incompetence [Unknown]
  - Aortic valve incompetence [Unknown]
  - Metastatic malignant melanoma [Unknown]

NARRATIVE: CASE EVENT DATE: 20180101
